FAERS Safety Report 18579555 (Version 1)
Quarter: 2020Q4

REPORT INFORMATION
  Report Type: Spontaneous
  Country: CN (occurrence: CN)
  Receive Date: 20201204
  Receipt Date: 20201204
  Transmission Date: 20210114
  Serious: Yes (Other)
  Sender: FDA-Public Use
  Company Number: CN-PFIZER INC-2020471942

PATIENT
  Age: 30 Year
  Sex: Male

DRUGS (1)
  1. PIPERACILLIN/TAZOBACTAM [Suspect]
     Active Substance: PIPERACILLIN SODIUM\TAZOBACTAM SODIUM
     Indication: ABSCESS
     Dosage: 4.5 G, 2X/DAY
     Route: 041
     Dates: start: 20201111, end: 20201116

REACTIONS (5)
  - Body temperature increased [Recovering/Resolving]
  - White blood cell count decreased [Recovering/Resolving]
  - Neutrophil count increased [Recovering/Resolving]
  - Red blood cell count decreased [Recovering/Resolving]
  - Procalcitonin increased [Recovering/Resolving]

NARRATIVE: CASE EVENT DATE: 20201115
